FAERS Safety Report 5321538-9 (Version None)
Quarter: 2007Q2

REPORT INFORMATION
  Report Type: 
  Country: None (occurrence: None)
  Receive Date: 20070220
  Receipt Date: 20061027
  Transmission Date: 20071010
  Serious: No
  Sender: FDA-Public Use
  Company Number: TPA2006A01938

PATIENT
  Age: 64 Year
  Sex: Male
  Weight: 78.0187 kg

DRUGS (10)
  1. ROZEREM [Suspect]
     Indication: INSOMNIA
     Dosage: 8 MG, QHS, PER ORAL
     Route: 048
     Dates: start: 20061026
  2. LIPITOR [Concomitant]
  3. PROTONIX [Concomitant]
  4. PLAVIX [Concomitant]
  5. ASPIRIN [Concomitant]
  6. FOLIC ACID [Concomitant]
  7. CHARCOAL (CHARCOAL, ACTIVATED) [Concomitant]
  8. PROBIOTICS (ALL OTHER THERAPEUTIC PRODUCTS) [Concomitant]
  9. AMBIEN [Concomitant]
  10. UNKNOWN BLOOD PRESSURE MEDICATION [Concomitant]

REACTIONS (1)
  - DRUG INEFFECTIVE [None]
